FAERS Safety Report 12521683 (Version 2)
Quarter: 2016Q3

REPORT INFORMATION
  Report Type: Report from Study
  Country: GB (occurrence: GB)
  Receive Date: 20160701
  Receipt Date: 20160803
  Transmission Date: 20161109
  Serious: Yes (Life-Threatening, Other)
  Sender: FDA-Public Use
  Company Number: GB-GILEAD-2016-0220656

PATIENT
  Age: 57 Year
  Sex: Male
  Weight: 68 kg

DRUGS (6)
  1. MYCOPHENOLATE [Concomitant]
     Active Substance: MYCOPHENOLIC ACID
  2. EMTRICITABINE/TENOFOVIR DISOPROXIL FUMARATE [Suspect]
     Active Substance: EMTRICITABINE\TENOFOVIR DISOPROXIL
     Indication: HIV INFECTION
     Dosage: 200 MG, QD
     Route: 048
     Dates: start: 20150112, end: 201602
  3. TACROLIMUS. [Concomitant]
     Active Substance: TACROLIMUS
  4. ATORVASTATIN [Concomitant]
     Active Substance: ATORVASTATIN
  5. EMTRICITABINE/TENOFOVIR DISOPROXIL FUMARATE [Suspect]
     Active Substance: EMTRICITABINE\TENOFOVIR DISOPROXIL
     Dosage: UNK
     Route: 065
  6. NOVORAPID [Concomitant]
     Active Substance: INSULIN ASPART

REACTIONS (7)
  - Reaction to drug excipients [Recovered/Resolved]
  - Renal failure [Recovered/Resolved]
  - Hepatic cirrhosis [Recovered/Resolved]
  - Abdominal pain [Recovered/Resolved]
  - Renal tubular disorder [Unknown]
  - Weight decreased [Recovered/Resolved]
  - Dyspnoea [Recovered/Resolved]

NARRATIVE: CASE EVENT DATE: 2011
